FAERS Safety Report 7392056-1 (Version None)
Quarter: 2011Q2

REPORT INFORMATION
  Report Type: 
  Country: None (occurrence: None)
  Receive Date: 20110404
  Receipt Date: 20110321
  Transmission Date: 20111010
  Serious: Yes (Hospitalization)
  Sender: FDA-Public Use
  Company Number: NL-JNJFOC-20110101250

PATIENT
  Sex: Female

DRUGS (7)
  1. REMICADE [Suspect]
     Indication: CROHN'S DISEASE
     Route: 042
  2. ANTIBIOTICS [Concomitant]
     Indication: CROHN'S DISEASE
  3. TRAMADOL [Concomitant]
  4. REMICADE [Suspect]
     Route: 042
  5. REMICADE [Suspect]
     Route: 042
  6. PARACETAMOL [Concomitant]
  7. MORPHINE [Concomitant]

REACTIONS (2)
  - ANAL FISTULA [None]
  - ANAL ABSCESS [None]
